FAERS Safety Report 9186506 (Version 3)
Quarter: 2014Q1

REPORT INFORMATION
  Report Type: Spontaneous
  Country: US (occurrence: US)
  Receive Date: 20130325
  Receipt Date: 20140205
  Transmission Date: 20141002
  Serious: No
  Sender: FDA-Public Use
  Company Number: US-PFIZER INC-2013093787

PATIENT
  Age: 63 Year
  Sex: Female
  Weight: 68.03 kg

DRUGS (1)
  1. LYRICA [Suspect]
     Indication: NEUROPATHY PERIPHERAL
     Dosage: 150 MG, 2X/DAY

REACTIONS (9)
  - Drug ineffective [Unknown]
  - Drug withdrawal syndrome [Unknown]
  - Pain [Unknown]
  - Insomnia [Unknown]
  - Pain [Unknown]
  - Eating disorder [Unknown]
  - Fluid intake reduced [Unknown]
  - Malaise [Unknown]
  - Feeling abnormal [Unknown]
